FAERS Safety Report 5358235-X (Version None)
Quarter: 2007Q2

REPORT INFORMATION
  Report Type: 
  Country: None (occurrence: None)
  Receive Date: 20070530
  Receipt Date: 20061019
  Transmission Date: 20071010
  Serious: Yes (Hospitalization)
  Sender: FDA-Public Use
  Company Number: US200603003961

PATIENT
  Age: 51 Year
  Sex: Female
  Weight: 75.7 kg

DRUGS (2)
  1. ZYPREXA [Suspect]
     Indication: DEPRESSION
     Dosage: 15 MG
     Dates: start: 19990301
  2. FLUOXETINE [Concomitant]

REACTIONS (5)
  - BLOOD CHOLESTEROL ABNORMAL [None]
  - CHEST PAIN [None]
  - DIABETES MELLITUS [None]
  - HYPERTENSION [None]
  - METABOLIC DISORDER [None]
